FAERS Safety Report 13330472 (Version 3)
Quarter: 2017Q2

REPORT INFORMATION
  Report Type: Report from Study
  Country: JP (occurrence: JP)
  Receive Date: 20170314
  Receipt Date: 20170406
  Transmission Date: 20170830
  Serious: Yes (Other)
  Sender: FDA-Public Use
  Company Number: JP-CONCORDIA PHARMACEUTICALS INC.-E2B_00008063

PATIENT
  Age: 86 Year
  Sex: Male

DRUGS (7)
  1. ZONISAMIDE. [Suspect]
     Active Substance: ZONISAMIDE
     Indication: DEMENTIA WITH LEWY BODIES
     Dosage: BLINDED: 25 MG, 50 MG OR PLACEBO
     Route: 048
     Dates: start: 20160611, end: 20160902
  2. BAYASPIRIN [Concomitant]
     Active Substance: ASPIRIN
  3. LAXOBERON [Concomitant]
     Active Substance: SODIUM PICOSULFATE
  4. BUP-4 [Concomitant]
     Active Substance: PROPIVERINE
     Indication: NOCTURIA
  5. URIEF OD [Concomitant]
  6. ZONISAMIDE. [Suspect]
     Active Substance: ZONISAMIDE
     Indication: PARKINSONISM
     Route: 048
     Dates: start: 20160903, end: 20170203
  7. EC-DOPARL [Concomitant]
     Active Substance: BENSERAZIDE HYDROCHLORIDE\LEVODOPA

REACTIONS (1)
  - Prostate cancer [Not Recovered/Not Resolved]

NARRATIVE: CASE EVENT DATE: 20170120
